FAERS Safety Report 6372138-3 (Version None)
Quarter: 2009Q3

REPORT INFORMATION
  Report Type: 
  Country: None (occurrence: None)
  Receive Date: 20090917
  Receipt Date: 20090904
  Transmission Date: 20100115
  Serious: Yes (Life-Threatening, Hospitalization)
  Sender: FDA-Public Use
  Company Number: ADR16432009

PATIENT
  Age: 26 Year
  Sex: Female

DRUGS (4)
  1. CITALOPRAM HYDROBROMIDE [Suspect]
     Indication: DEPRESSION
     Dosage: 20 MG
     Route: 048
     Dates: start: 20050210, end: 20050524
  2. PARACETAMOL [Concomitant]
  3. IBUPROFEN [Concomitant]
  4. DIAZEPAM [Concomitant]

REACTIONS (4)
  - INTENTIONAL SELF-INJURY [None]
  - MULTIPLE DRUG OVERDOSE INTENTIONAL [None]
  - SKIN LACERATION [None]
  - SUICIDE ATTEMPT [None]
